FAERS Safety Report 7949881-5 (Version None)
Quarter: 2011Q4

REPORT INFORMATION
  Report Type: 
  Country: None (occurrence: None)
  Receive Date: 20111130
  Receipt Date: 20111125
  Transmission Date: 20120403
  Serious: Yes (Other)
  Sender: FDA-Public Use
  Company Number: US-PFIZER INC-2011288542

PATIENT
  Sex: Female

DRUGS (5)
  1. PROZAC [Suspect]
     Dosage: UNK
     Route: 048
  2. CYMBALTA [Suspect]
     Dosage: UNK
  3. PRISTIQ [Suspect]
     Dosage: UNK
     Route: 048
  4. PAXIL [Suspect]
     Indication: ANXIETY
     Dosage: UNK
     Route: 048
     Dates: start: 19940101
  5. PAXIL [Suspect]
     Indication: DEPRESSION

REACTIONS (2)
  - LOSS OF CONSCIOUSNESS [None]
  - DEPRESSED MOOD [None]
